FAERS Safety Report 10963651 (Version 1)
Quarter: 2015Q1

REPORT INFORMATION
  Report Type: Spontaneous
  Country: US (occurrence: US)
  Receive Date: 20150328
  Receipt Date: 20150328
  Transmission Date: 20150721
  Serious: No
  Sender: FDA-Public Use
  Company Number: US-BIOGENIDEC-2015BI037319

PATIENT
  Age: 58 Year
  Sex: Female

DRUGS (1)
  1. AVONEX [Suspect]
     Active Substance: INTERFERON BETA-1A
     Indication: RELAPSING-REMITTING MULTIPLE SCLEROSIS

REACTIONS (5)
  - Dry mouth [Unknown]
  - Nasopharyngitis [Unknown]
  - Eye disorder [Unknown]
  - Optic neuritis [Unknown]
  - Malaise [Unknown]

NARRATIVE: CASE EVENT DATE: 20150314
